FAERS Safety Report 8597015-9 (Version None)
Quarter: 2012Q3

REPORT INFORMATION
  Report Type: 
  Country: None (occurrence: None)
  Receive Date: 20120816
  Receipt Date: 20120808
  Transmission Date: 20120928
  Serious: Yes (Hospitalization)
  Sender: FDA-Public Use
  Company Number: BE-AMGEN-BELCT2012050841

PATIENT
  Age: 37 Year
  Sex: Male

DRUGS (3)
  1. ETANERCEPT [Suspect]
     Indication: PSORIATIC ARTHROPATHY
     Dosage: 25 MG, 2X/WEEK
     Route: 058
     Dates: start: 20040801, end: 20050719
  2. ETANERCEPT [Suspect]
     Dosage: 50 MG, QWK
     Dates: start: 20050919
  3. NEORAL [Concomitant]
     Dosage: UNK
     Dates: start: 20020701

REACTIONS (2)
  - CELLULITIS [None]
  - BURSITIS [None]
